FAERS Safety Report 5823917-X (Version None)
Quarter: 2008Q3

REPORT INFORMATION
  Report Type: 
  Country: None (occurrence: None)
  Receive Date: 20080724
  Receipt Date: 20080716
  Transmission Date: 20090109
  Serious: Yes (Other)
  Sender: FDA-Public Use
  Company Number: 2008SP014885

PATIENT
  Sex: Male

DRUGS (4)
  1. AFRIN [Suspect]
     Dosage: NASAL
     Route: 045
     Dates: start: 20080715, end: 20080715
  2. PSEUDOEPHEDRINE HCL [Suspect]
     Indication: NASOPHARYNGITIS
     Dates: start: 20080715, end: 20080715
  3. CAFFEINE [Suspect]
     Indication: DRUG USE FOR UNKNOWN INDICATION
     Dates: end: 20080716
  4. THYROID MEDICATION [Concomitant]

REACTIONS (4)
  - AGITATION [None]
  - HYPERTHYROIDISM [None]
  - PALPITATIONS [None]
  - SPEECH DISORDER [None]
